FAERS Safety Report 7048434-3 (Version None)
Quarter: 2010Q4

REPORT INFORMATION
  Report Type: 
  Country: None (occurrence: None)
  Receive Date: 20101015
  Receipt Date: 20101015
  Transmission Date: 20110411
  Serious: Yes (Other)
  Sender: FDA-Public Use
  Company Number: None

PATIENT
  Sex: Male
  Weight: 86.1834 kg

DRUGS (3)
  1. OXYCONTIN [Suspect]
     Indication: ARTHRALGIA
     Dosage: 5 A DAY
     Dates: start: 20000101, end: 20100101
  2. OXYCONTIN [Suspect]
     Indication: BACK PAIN
     Dosage: 5 A DAY
     Dates: start: 20000101, end: 20100101
  3. OXYCONTIN [Suspect]
     Indication: NECK PAIN
     Dosage: 5 A DAY
     Dates: start: 20000101, end: 20100101

REACTIONS (3)
  - DIARRHOEA [None]
  - MUSCLE SPASMS [None]
  - NO THERAPEUTIC RESPONSE [None]
